FAERS Safety Report 6435648-6 (Version None)
Quarter: 2009Q4

REPORT INFORMATION
  Report Type: 
  Country: None (occurrence: None)
  Receive Date: 20091111
  Receipt Date: 20091102
  Transmission Date: 20100525
  Serious: Yes (Hospitalization)
  Sender: FDA-Public Use
  Company Number: PL-JNJFOC-20090700898

PATIENT
  Sex: Female
  Weight: 94 kg

DRUGS (4)
  1. STELARA [Suspect]
     Route: 058
  2. STELARA [Suspect]
     Indication: PSORIASIS
     Route: 058
  3. ISONIAZIDUM [Concomitant]
     Indication: LUNG DISORDER
     Route: 048
  4. NITRENDIPINUM [Concomitant]
     Indication: HYPERTENSION
     Route: 048

REACTIONS (1)
  - ERYTHRODERMIC PSORIASIS [None]
